FAERS Safety Report 4605175-7 (Version None)
Quarter: 2005Q2

REPORT INFORMATION
  Report Type: 
  Country: None (occurrence: None)
  Receive Date: 20050217
  Receipt Date: 20041115
  Transmission Date: 20051028
  Serious: No
  Sender: FDA-Public Use
  Company Number: S04-USA-07434-01

PATIENT
  Age: 85 Year
  Sex: Female

DRUGS (11)
  1. NAMENDA [Suspect]
     Indication: DEMENTIA ALZHEIMER'S TYPE
     Dosage: 10 MG BID PO
     Route: 048
     Dates: start: 20041109
  2. NAMENDA [Suspect]
     Indication: DEMENTIA ALZHEIMER'S TYPE
     Dosage: 5 MG QD PO
     Route: 048
     Dates: start: 20041019, end: 20041025
  3. NAMENDA [Suspect]
     Indication: DEMENTIA ALZHEIMER'S TYPE
     Dosage: 5 MG BID PO
     Route: 048
     Dates: start: 20041026, end: 20041101
  4. NAMENDA [Suspect]
     Indication: DEMENTIA ALZHEIMER'S TYPE
     Dosage: 15 MG QD PO
     Route: 048
     Dates: start: 20041102, end: 20041108
  5. LIPITOR [Concomitant]
  6. FAMOTIDINE [Concomitant]
  7. DILTIAZEM [Concomitant]
  8. HYDROCHLOROTHIAZIDE [Concomitant]
  9. NITROGYLCERIN [Concomitant]
  10. ASPIRIN [Concomitant]
  11. POTASSIUM CHLORIDE [Concomitant]

REACTIONS (1)
  - VISION BLURRED [None]
